FAERS Safety Report 17024833 (Version 1)
Quarter: 2019Q4

REPORT INFORMATION
  Report Type: Spontaneous
  Country: US (occurrence: US)
  Receive Date: 20191113
  Receipt Date: 20191113
  Transmission Date: 20200122
  Serious: Yes (Other)
  Sender: FDA-Public Use
  Company Number: NVSC2019US030365

PATIENT
  Age: 77 Year
  Sex: Male

DRUGS (2)
  1. AMIODARONE [Concomitant]
     Active Substance: AMIODARONE
     Indication: ATRIAL FIBRILLATION
     Dosage: UNK
     Route: 065
  2. TERBINAFINE. [Suspect]
     Active Substance: TERBINAFINE
     Indication: PHAEOHYPHOMYCOSIS
     Dosage: 250 MG
     Route: 048

REACTIONS (4)
  - Drug ineffective [Unknown]
  - Disease progression [Unknown]
  - Product use in unapproved indication [Unknown]
  - Phaeohyphomycosis [Unknown]
